FAERS Safety Report 5875566-5 (Version None)
Quarter: 2008Q3

REPORT INFORMATION
  Report Type: 
  Country: None (occurrence: None)
  Receive Date: 20080909
  Receipt Date: 20080826
  Transmission Date: 20090109
  Serious: Yes (Hospitalization)
  Sender: FDA-Public Use
  Company Number: US-ELI_LILLY_AND_COMPANY-US200808005881

PATIENT
  Sex: Female
  Weight: 131.97 kg

DRUGS (9)
  1. BYETTA [Suspect]
     Indication: TYPE 2 DIABETES MELLITUS
     Dosage: 5 UG, 2/D
     Route: 058
     Dates: start: 20080301
  2. K-DUR [Concomitant]
     Dosage: 40 MEQ, 2/D
     Route: 048
  3. METFORMIN [Concomitant]
     Dosage: 500 MG, DAILY (1/D)
     Route: 048
  4. FUROSEMIDE [Concomitant]
     Dosage: 40 MG, DAILY (1/D)
     Route: 048
  5. METOPROLOL SUCCINATE [Concomitant]
     Dosage: 50 MG, 2/D
     Route: 048
  6. PRILOSEC [Concomitant]
     Dosage: 20 MG, DAILY (1/D)
  7. COLCHICINE [Concomitant]
     Dosage: 0.6 MG, 2/D
  8. ALLOPURINOL [Concomitant]
     Dosage: 100 MG, DAILY (1/D)
  9. TRAMADOL HCL [Concomitant]
     Dosage: UNK, AS NEEDED

REACTIONS (3)
  - BLISTER [None]
  - SKIN IRRITATION [None]
  - WEIGHT DECREASED [None]
